FAERS Safety Report 7698566-1 (Version None)
Quarter: 2011Q3

REPORT INFORMATION
  Report Type: 
  Country: None (occurrence: None)
  Receive Date: 20110818
  Receipt Date: 20110818
  Transmission Date: 20111222
  Serious: No
  Sender: FDA-Public Use
  Company Number: None

PATIENT
  Age: 70 Year
  Sex: Male
  Weight: 86.18 kg

DRUGS (1)
  1. TESTOSTERONE [Suspect]
     Indication: ERECTILE DYSFUNCTION
     Dosage: 1 PKT GM EVERY DAY TOP
     Route: 061
     Dates: start: 20100301, end: 20100714

REACTIONS (2)
  - LIQUID PRODUCT PHYSICAL ISSUE [None]
  - PRODUCT QUALITY ISSUE [None]
